FAERS Safety Report 18199680 (Version 1)
Quarter: 2020Q3

REPORT INFORMATION
  Report Type: Spontaneous
  Country: US (occurrence: US)
  Receive Date: 20200826
  Receipt Date: 20200826
  Transmission Date: 20201103
  Serious: No
  Sender: FDA-Public Use
  Company Number: US-PFIZER INC-2017432634

PATIENT
  Age: 65 Year
  Sex: Female

DRUGS (10)
  1. OXYCONTIN [Concomitant]
     Active Substance: OXYCODONE HYDROCHLORIDE
     Dosage: 10 MG, 2X/DAY
  2. LYRICA [Suspect]
     Active Substance: PREGABALIN
     Dosage: 100 MG, 1X/DAY (TAKE 1 CAPSULE BY MOUTH DAILY FOR 180 DAYS)
     Route: 048
  3. LYRICA [Suspect]
     Active Substance: PREGABALIN
     Indication: BACK PAIN
     Dosage: 200 MG, 1X/DAY ((ONE CAPSULE BY MOUTH NIGHTLY)
     Route: 048
     Dates: start: 20170926, end: 20171225
  4. LYRICA [Suspect]
     Active Substance: PREGABALIN
     Dosage: 100 MG, 1X/DAY
     Route: 048
     Dates: start: 20191003, end: 20200331
  5. LYRICA [Suspect]
     Active Substance: PREGABALIN
     Dosage: 200 MG, 1X/DAY
     Route: 048
     Dates: start: 20191003, end: 20200331
  6. OXYCONTIN [Concomitant]
     Active Substance: OXYCODONE HYDROCHLORIDE
     Dosage: 15 MG, 2X/DAY
  7. LYRICA [Suspect]
     Active Substance: PREGABALIN
     Indication: BURSITIS
     Dosage: 100 MG, 1X/DAY
     Route: 048
     Dates: start: 20181016, end: 20191011
  8. LYRICA [Suspect]
     Active Substance: PREGABALIN
     Indication: FIBROMYALGIA
     Dosage: 100 MG, 1X/DAY
     Route: 048
     Dates: start: 20171006, end: 20180104
  9. LYRICA [Suspect]
     Active Substance: PREGABALIN
     Dosage: 200 MG, 1X/DAY
     Route: 048
     Dates: start: 20181016, end: 20191011
  10. LYRICA [Suspect]
     Active Substance: PREGABALIN
     Dosage: 200 MG, 1X/DAY [TAKE 1 CAP BY MOUTH NIGHTLY FOR 180 DAYS]
     Route: 048

REACTIONS (1)
  - Anxiety [Unknown]
